FAERS Safety Report 4953856-8 (Version None)
Quarter: 2006Q1

REPORT INFORMATION
  Report Type: 
  Country: None (occurrence: None)
  Receive Date: 20060321
  Receipt Date: 20060308
  Transmission Date: 20060701
  Serious: Yes (Death)
  Sender: FDA-Public Use
  Company Number: 2006-DE-01278GD

PATIENT
  Age: 5 Month
  Sex: Male
  Weight: 5.975 kg

DRUGS (7)
  1. ACETAMINOPHEN [Suspect]
  2. DEXTROMETHORPHAN INGELHEIM [Suspect]
  3. PSEUDOEPHEDRINE HCL (PSEUDOEPHDRINE) [Suspect]
  4. EPHEDRINE SUL CAP [Suspect]
  5. METOCLOPRAMIDE [Suspect]
  6. CARBINOXAMINE (CARBINOXAMINE) [Suspect]
  7. ANTIBIOTIC (ANTIBIOTICS) [Concomitant]

REACTIONS (4)
  - DRUG TOXICITY [None]
  - MIDDLE EAR EFFUSION [None]
  - PULMONARY CONGESTION [None]
  - TOXICOLOGIC TEST ABNORMAL [None]
